FAERS Safety Report 7973235-9 (Version None)
Quarter: 2011Q4

REPORT INFORMATION
  Report Type: 
  Country: None (occurrence: None)
  Receive Date: 20111213
  Receipt Date: 20111206
  Transmission Date: 20120403
  Serious: Yes (Other)
  Sender: FDA-Public Use
  Company Number: PHHY2011JP107260

PATIENT
  Sex: Male
  Weight: 80 kg

DRUGS (6)
  1. AMLODIPINE [Concomitant]
     Indication: HYPERTENSION
     Dosage: 5 MG, UNK
     Route: 048
     Dates: start: 20070602, end: 20101217
  2. EPLERENONE [Concomitant]
     Dosage: 25 MG, UNK
     Route: 048
     Dates: start: 20110119, end: 20111118
  3. EXFORGE [Concomitant]
     Indication: HYPERTENSION
     Dosage: 1 DF, UNK
     Route: 048
     Dates: start: 20101119, end: 20111118
  4. DIOVAN HCT [Suspect]
     Indication: HYPERTENSION
     Dosage: 1 DF, QD
     Route: 048
     Dates: start: 20100406, end: 20101217
  5. LIPIDIL [Concomitant]
     Dosage: 100 MG, UNK
     Route: 048
     Dates: start: 20100915, end: 20111118
  6. ALLOPURINOL [Concomitant]
     Dosage: 3 DF, UNK
     Route: 048
     Dates: start: 20101217, end: 20111118

REACTIONS (1)
  - CARDIAC FAILURE [None]
